FAERS Safety Report 18136103 (Version 1)
Quarter: 2020Q3

REPORT INFORMATION
  Report Type: Spontaneous
  Country: CN (occurrence: CN)
  Receive Date: 20200811
  Receipt Date: 20200811
  Transmission Date: 20201103
  Serious: Yes (Other)
  Sender: FDA-Public Use
  Company Number: CN-PFIZER INC-2020304314

PATIENT
  Age: 60 Year
  Sex: Female
  Weight: 57.3 kg

DRUGS (1)
  1. MEDROL [Suspect]
     Active Substance: METHYLPREDNISOLONE
     Indication: SYMPTOMATIC TREATMENT
     Dosage: 8 MG, 1X/DAY
     Route: 048
     Dates: start: 20200701, end: 20200706

REACTIONS (16)
  - White blood cell count increased [Unknown]
  - Blood bilirubin unconjugated increased [Unknown]
  - High density lipoprotein decreased [Unknown]
  - Red blood cell count decreased [Unknown]
  - Blood uric acid increased [Unknown]
  - Alanine aminotransferase increased [Unknown]
  - Aspartate aminotransferase increased [Unknown]
  - Blood albumin decreased [Unknown]
  - Arthralgia [Recovered/Resolved]
  - Blood bilirubin increased [Unknown]
  - Blood cholesterol decreased [Unknown]
  - Low density lipoprotein decreased [Unknown]
  - Platelet count decreased [Unknown]
  - Protein total decreased [Unknown]
  - Blood triglycerides decreased [Unknown]
  - Blood creatinine increased [Unknown]

NARRATIVE: CASE EVENT DATE: 2020
